FAERS Safety Report 10587458 (Version 1)
Quarter: 2014Q4

REPORT INFORMATION
  Report Type: Spontaneous
  Country: US (occurrence: US)
  Receive Date: 20141117
  Receipt Date: 20141117
  Transmission Date: 20150529
  Serious: Yes (Other)
  Sender: FDA-Public Use
  Company Number: US-PFIZER INC-2014315062

PATIENT
  Age: 68 Year
  Sex: Female

DRUGS (5)
  1. OMEPRAZOLE. [Suspect]
     Active Substance: OMEPRAZOLE
     Indication: DYSPEPSIA
     Dosage: UNK, 1X/DAY
     Dates: start: 20141109, end: 201411
  2. ADVIL [Suspect]
     Active Substance: IBUPROFEN
     Indication: TENDONITIS
     Dosage: UNK
     Dates: start: 20141026, end: 20141030
  3. ALEVE [Suspect]
     Active Substance: NAPROXEN SODIUM
     Indication: TENDONITIS
     Dosage: UNK
     Dates: start: 20141031, end: 20141103
  4. ADVIL [Suspect]
     Active Substance: IBUPROFEN
     Dosage: UNK
     Dates: start: 201411
  5. TEGRETOL [Suspect]
     Active Substance: CARBAMAZEPINE
     Indication: SEIZURE
     Dosage: 800 MG, 3X/DAY

REACTIONS (5)
  - Seizure [Unknown]
  - Drug ineffective [Unknown]
  - Dyspepsia [Not Recovered/Not Resolved]
  - Chest pain [Unknown]
  - Burning sensation [Unknown]

NARRATIVE: CASE EVENT DATE: 2014
